FAERS Safety Report 9442154 (Version 1)
Quarter: 2013Q3

REPORT INFORMATION
  Report Type: Report from Study
  Country: NL (occurrence: NL)
  Receive Date: 20130806
  Receipt Date: 20130806
  Transmission Date: 20140515
  Serious: Yes (Death)
  Sender: FDA-Public Use
  Company Number: PHHY2013NL045775

PATIENT
  Sex: Male

DRUGS (6)
  1. ZOMETA [Suspect]
     Indication: PROSTATE CANCER METASTATIC
     Dosage: 4 MG, PER 100 ML, ONCE PER 28 DAYS
     Route: 042
  2. ZOMETA [Suspect]
     Dosage: 4 MG, PER 100 ML, ONCE PER 28 DAYS
     Route: 042
     Dates: start: 20120704
  3. ZOMETA [Suspect]
     Dosage: 4 MG, PER 100 ML, ONCE PER 28 DAYS
     Route: 042
     Dates: start: 20130412
  4. ZOMETA [Suspect]
     Dosage: 4 MG, PER 100 ML, ONCE PER 28 DAYS
     Route: 042
     Dates: start: 20130507
  5. ORAMORPH [Concomitant]
     Dosage: UNK UKN, UNK
  6. FENTANYL [Concomitant]
     Dosage: UNK UKN, UNK

REACTIONS (3)
  - Death [Fatal]
  - Fluid retention [Recovering/Resolving]
  - Bone pain [Unknown]
